FAERS Safety Report 8582874-6 (Version None)
Quarter: 2012Q3

REPORT INFORMATION
  Report Type: 
  Country: None (occurrence: None)
  Receive Date: 20120809
  Receipt Date: 20120806
  Transmission Date: 20120928
  Serious: Yes (Hospitalization, Other)
  Sender: FDA-Public Use
  Company Number: US-PFIZER INC-2012191336

PATIENT
  Age: 71 Year
  Sex: Female
  Weight: 117.91 kg

DRUGS (6)
  1. INSULIN [Concomitant]
     Dosage: UNK
  2. LEVOXYL [Concomitant]
     Indication: HYPERTHYROIDISM
     Dosage: 75 UG, 1X/DAY
  3. ALLOPURINOL [Concomitant]
     Dosage: UNK
  4. COREG [Concomitant]
     Dosage: UNK
  5. SUTENT [Suspect]
     Indication: RENAL CANCER STAGE IV
     Dosage: 37.5 MG, 1X/DAY
     Route: 048
     Dates: start: 20120630, end: 20120715
  6. WARFARIN [Concomitant]
     Dosage: UNK
     Dates: end: 20120701

REACTIONS (10)
  - HAEMATOTOXICITY [None]
  - EJECTION FRACTION DECREASED [None]
  - BODY TEMPERATURE INCREASED [None]
  - VEIN DISORDER [None]
  - JAUNDICE [None]
  - CHILLS [None]
  - HEART INJURY [None]
  - VOMITING [None]
  - PLATELET COUNT DECREASED [None]
  - HEPATIC ENZYME INCREASED [None]
